FAERS Safety Report 19507952 (Version 1)
Quarter: 2021Q3

REPORT INFORMATION
  Report Type: Spontaneous
  Country: PL (occurrence: PL)
  Receive Date: 20210708
  Receipt Date: 20210708
  Transmission Date: 20211014
  Serious: Yes (Hospitalization)
  Sender: FDA-Public Use
  Company Number: PL-JNJFOC-20210714278

PATIENT
  Age: 36 Year
  Sex: Male

DRUGS (1)
  1. TRAMADOL HYDROCHLORIDE. [Suspect]
     Active Substance: TRAMADOL HYDROCHLORIDE
     Indication: BACK PAIN
     Dosage: 100 MILLIGRAM, 2/DAY
     Route: 048
     Dates: end: 20210627

REACTIONS (3)
  - Loss of consciousness [Recovered/Resolved]
  - Tongue biting [Recovered/Resolved]
  - Extremity contracture [Recovered/Resolved]

NARRATIVE: CASE EVENT DATE: 20210627
